FAERS Safety Report 21605287 (Version 3)
Quarter: 2023Q1

REPORT INFORMATION
  Report Type: Spontaneous
  Country: CA (occurrence: CA)
  Receive Date: 20221116
  Receipt Date: 20230113
  Transmission Date: 20230418
  Serious: Yes (Hospitalization)
  Sender: FDA-Public Use
  Company Number: CA-KARYOPHARM THERAPEUTICS, INC.-2022KPT001336

PATIENT

DRUGS (4)
  1. XPOVIO [Suspect]
     Active Substance: SELINEXOR
     Indication: Plasma cell myeloma
     Dosage: 100 MG, WEEKLY FOR 5 WEEKS
     Route: 048
     Dates: start: 20220923
  2. OLANZAPINE [Concomitant]
     Active Substance: OLANZAPINE
     Dosage: UNK
  3. ONDANSETRON [Concomitant]
     Active Substance: ONDANSETRON
     Dosage: UNK
  4. DEXAMETHASONE [Concomitant]
     Active Substance: DEXAMETHASONE
     Dosage: 10 MG ON DAY 1 AND DAY 3
     Dates: start: 2022

REACTIONS (7)
  - Dysarthria [Unknown]
  - Pathological fracture [Unknown]
  - Hyperglycaemic hyperosmolar nonketotic syndrome [Unknown]
  - Plasma cell myeloma [Unknown]
  - COVID-19 [Unknown]
  - Diabetes mellitus [Unknown]
  - Off label use [Unknown]

NARRATIVE: CASE EVENT DATE: 20220101
